FAERS Safety Report 5705124-4 (Version None)
Quarter: 2008Q2

REPORT INFORMATION
  Report Type: 
  Country: None (occurrence: None)
  Receive Date: 20080414
  Receipt Date: 20080404
  Transmission Date: 20081010
  Serious: Yes (Death, Other)
  Sender: FDA-Public Use
  Company Number: FR-MERCK-0804FRA00036

PATIENT
  Age: 46 Year
  Sex: Male

DRUGS (3)
  1. CANCIDAS [Suspect]
     Indication: PYREXIA
     Route: 042
  2. CANCIDAS [Suspect]
     Indication: EVIDENCE BASED TREATMENT
     Route: 042
  3. CORTICOSTEROIDS (UNSPECIFIED) [Concomitant]
     Route: 065

REACTIONS (5)
  - ACUTE GRAFT VERSUS HOST DISEASE [None]
  - ACUTE RESPIRATORY DISTRESS SYNDROME [None]
  - CYTOMEGALOVIRUS INFECTION [None]
  - DRUG INEFFECTIVE [None]
  - SYSTEMIC CANDIDA [None]
